FAERS Safety Report 21266868 (Version 1)
Quarter: 2022Q3

REPORT INFORMATION
  Report Type: Spontaneous
  Country: GB (occurrence: GB)
  Receive Date: 20220829
  Receipt Date: 20220829
  Transmission Date: 20221026
  Serious: Yes (Disabling, Other)
  Sender: FDA-Public Use
  Company Number: GB-MHRA-MED-202208252318136170-JWVRF

PATIENT
  Age: 32 Year
  Sex: Female
  Weight: 78 kg

DRUGS (1)
  1. SERTRALINE [Suspect]
     Active Substance: SERTRALINE HYDROCHLORIDE
     Indication: Product used for unknown indication
     Dosage: 50 MILLIGRAM, QD (50MG ONCE A SAY)
     Route: 065

REACTIONS (5)
  - Night sweats [Not Recovered/Not Resolved]
  - Restless legs syndrome [Recovering/Resolving]
  - Mood swings [Not Recovered/Not Resolved]
  - Daydreaming [Not Recovered/Not Resolved]
  - Hot flush [Not Recovered/Not Resolved]

NARRATIVE: CASE EVENT DATE: 20220701
